FAERS Safety Report 18218143 (Version 2)
Quarter: 2020Q3

REPORT INFORMATION
  Report Type: Spontaneous
  Country: US (occurrence: US)
  Receive Date: 20200901
  Receipt Date: 20200920
  Transmission Date: 20201103
  Serious: Yes (Other)
  Sender: FDA-Public Use
  Company Number: US-TEVA-2020-US-1821477

PATIENT
  Age: 48 Year
  Sex: Female

DRUGS (6)
  1. LENALIDOMIDE [Suspect]
     Active Substance: LENALIDOMIDE
     Indication: PLASMA CELL MYELOMA
     Dosage: 10 MILLIGRAM DAILY;
     Route: 048
     Dates: start: 201808, end: 201903
  2. METHYLPREDNISOLONE. [Suspect]
     Active Substance: METHYLPREDNISOLONE
     Indication: PLASMA CELL MYELOMA
     Dosage: 40MG EVERY OTHER DAY
     Route: 048
     Dates: start: 201808, end: 201903
  3. LENALIDOMIDE [Suspect]
     Active Substance: LENALIDOMIDE
     Indication: XANTHOGRANULOMA
  4. CRISABOROLE [Concomitant]
     Active Substance: CRISABOROLE
     Indication: XANTHOGRANULOMA
  5. METHYLPREDNISOLONE. [Suspect]
     Active Substance: METHYLPREDNISOLONE
     Indication: XANTHOGRANULOMA
  6. CRISABOROLE [Concomitant]
     Active Substance: CRISABOROLE
     Indication: PLASMA CELL MYELOMA
     Route: 061
     Dates: start: 201811

REACTIONS (4)
  - Drug intolerance [Unknown]
  - Headache [Unknown]
  - Alopecia [Unknown]
  - Gastrointestinal disorder [Unknown]
